FAERS Safety Report 5761341-9 (Version None)
Quarter: 2008Q2

REPORT INFORMATION
  Report Type: 
  Country: None (occurrence: None)
  Receive Date: 20080606
  Receipt Date: 20080526
  Transmission Date: 20081010
  Serious: Yes (Other)
  Sender: FDA-Public Use
  Company Number: FR-ROCHE-566931

PATIENT
  Sex: Female

DRUGS (12)
  1. ROCEPHIN [Suspect]
     Indication: FAECALOMA
     Dosage: OTHER INDICATION: URINARY TRACT INFECTION
     Route: 042
     Dates: start: 20080408, end: 20080413
  2. CIPROFLOXACIN HCL [Suspect]
     Indication: FAECALOMA
     Dosage: OTHER INDICATION: URINARY TRACT INFECTION, STRENGTH: 200 MG/ 100 ML
     Route: 042
     Dates: start: 20080408, end: 20080413
  3. PREVISCAN [Suspect]
     Indication: ATRIAL FIBRILLATION
     Route: 048
  4. PREVISCAN [Suspect]
     Route: 048
     Dates: start: 20080409, end: 20080410
  5. PREVISCAN [Suspect]
     Route: 048
     Dates: start: 20080414
  6. PREVISCAN [Suspect]
     Route: 048
  7. PREVISCAN [Suspect]
     Route: 048
     Dates: start: 20080409, end: 20080410
  8. PREVISCAN [Suspect]
     Route: 048
     Dates: start: 20080414
  9. KENZEN [Concomitant]
  10. ALLOPURINOL [Concomitant]
  11. 1 CONCOMITANT DRUG [Concomitant]
     Dosage: DRUG NAME: BITILDIEM
  12. FUROSEMIDE [Concomitant]

REACTIONS (2)
  - ANAEMIA [None]
  - INTERNATIONAL NORMALISED RATIO INCREASED [None]
